FAERS Safety Report 11285003 (Version 1)
Quarter: 2015Q3

REPORT INFORMATION
  Report Type: Spontaneous
  Country: GR (occurrence: GR)
  Receive Date: 20150720
  Receipt Date: 20150720
  Transmission Date: 20151125
  Serious: Yes (Other)
  Sender: FDA-Public Use
  Company Number: GR-PFIZER INC-2015186197

PATIENT
  Age: 33 Year
  Sex: Male

DRUGS (4)
  1. T4 [Suspect]
     Active Substance: LEVOTHYROXINE
     Indication: AUTOIMMUNE THYROIDITIS
  2. ZOLOFT [Suspect]
     Active Substance: SERTRALINE HYDROCHLORIDE
     Indication: GENERALISED ANXIETY DISORDER
     Dosage: 200 MG, DAILY
     Dates: start: 201408
  3. T4 [Suspect]
     Active Substance: LEVOTHYROXINE
     Indication: HYPOTHYROIDISM
     Dosage: 50 MG, UNK
     Dates: start: 2014, end: 201502
  4. ZOLOFT [Suspect]
     Active Substance: SERTRALINE HYDROCHLORIDE
     Indication: DEPRESSION

REACTIONS (7)
  - Autoimmune thyroiditis [Unknown]
  - Disease recurrence [Unknown]
  - Crying [Recovered/Resolved]
  - Mood altered [Recovered/Resolved]
  - Hypothyroidism [Unknown]
  - Anxiety [Recovered/Resolved]
  - Anxiety [Unknown]

NARRATIVE: CASE EVENT DATE: 201411
